FAERS Safety Report 8546286-3 (Version None)
Quarter: 2012Q3

REPORT INFORMATION
  Report Type: 
  Country: None (occurrence: None)
  Receive Date: 20120727
  Receipt Date: 20111212
  Transmission Date: 20120928
  Serious: No
  Sender: FDA-Public Use
  Company Number: US-ASTRAZENECA-2011SE75305

PATIENT
  Age: 50 Year
  Sex: Female

DRUGS (4)
  1. SEROQUEL XR [Suspect]
     Indication: POST-TRAUMATIC STRESS DISORDER
     Dosage: 300 MG IN THE MORNING AND 400 MG AT NIGHT
     Route: 048
  2. SEROQUEL XR [Suspect]
     Indication: DEPRESSION
     Dosage: 300 MG IN THE MORNING AND 400 MG AT NIGHT
     Route: 048
  3. SEROQUEL XR [Suspect]
     Indication: ANXIETY
     Dosage: 300 MG IN THE MORNING AND 400 MG AT NIGHT
     Route: 048
  4. SEROQUEL XR [Suspect]
     Indication: PANIC DISORDER
     Dosage: 300 MG IN THE MORNING AND 400 MG AT NIGHT
     Route: 048

REACTIONS (2)
  - DRUG DOSE OMISSION [None]
  - DRUG WITHDRAWAL SYNDROME [None]
